FAERS Safety Report 7962524-X (Version None)
Quarter: 2011Q4

REPORT INFORMATION
  Report Type: 
  Country: None (occurrence: None)
  Receive Date: 20111207
  Receipt Date: 20111128
  Transmission Date: 20120403
  Serious: Yes (Life-Threatening, Hospitalization)
  Sender: FDA-Public Use
  Company Number: JP-GLAXOSMITHKLINE-B0693336A

PATIENT
  Sex: Female
  Weight: 41 kg

DRUGS (14)
  1. FLOLAN [Suspect]
     Dates: start: 20101130
  2. REVATIO [Suspect]
     Indication: PULMONARY HYPERTENSION
     Route: 048
  3. MAGMITT [Concomitant]
     Route: 048
  4. URSO 250 [Concomitant]
     Route: 048
  5. ALDACTONE [Concomitant]
     Indication: PROPHYLAXIS
     Route: 048
  6. PREDNISOLONE [Concomitant]
     Indication: SCLERODERMA
     Route: 048
  7. GLAKAY [Concomitant]
     Indication: PROPHYLAXIS
     Route: 048
  8. FUROSEMIDE [Concomitant]
     Route: 048
  9. LOXONIN [Concomitant]
     Route: 048
  10. LANSOPRAZOLE [Concomitant]
     Route: 048
  11. ASPARTIC ACID [Concomitant]
     Indication: PROPHYLAXIS
  12. FLOLAN [Suspect]
     Indication: PULMONARY ARTERIAL HYPERTENSION
     Route: 042
     Dates: end: 20101129
  13. MUCOSTA [Concomitant]
     Indication: PROPHYLAXIS
     Route: 048
  14. VOLIBRIS [Suspect]
     Indication: PULMONARY HYPERTENSION
     Route: 048
     Dates: start: 20101019, end: 20101224

REACTIONS (3)
  - PULMONARY ALVEOLAR HAEMORRHAGE [None]
  - ANAEMIA [None]
  - CARDIAC FAILURE [None]
